FAERS Safety Report 9587361 (Version 2)
Quarter: 2013Q4

REPORT INFORMATION
  Report Type: Report from Study
  Country: IT (occurrence: IT)
  Receive Date: 20131003
  Receipt Date: 20131003
  Transmission Date: 20140711
  Serious: Yes (Death)
  Sender: FDA-Public Use
  Company Number: IT-ROCHE-705357

PATIENT
  Sex: 0

DRUGS (5)
  1. RITUXIMAB [Suspect]
     Indication: SPLENIC MARGINAL ZONE LYMPHOMA
     Dosage: FORM: INFUSION; FREQUENCY: INFUSED OVER 3-6 HR PERIOD
     Route: 065
  2. CLADRIBINE [Suspect]
     Indication: SPLENIC MARGINAL ZONE LYMPHOMA
     Dosage: ADMINISTERED FOR 6 CYCLES
     Route: 042
  3. FLUCONAZOLE [Concomitant]
     Indication: PREMEDICATION
     Route: 065
  4. ACICLOVIR [Concomitant]
     Indication: PREMEDICATION
     Route: 065
  5. ACETAMINOPHEN [Concomitant]
     Indication: PREMEDICATION
     Route: 065

REACTIONS (1)
  - Gastric cancer [Fatal]
